FAERS Safety Report 9149133 (Version 9)
Quarter: 2013Q3

REPORT INFORMATION
  Report Type: Spontaneous
  Country: US (occurrence: US)
  Receive Date: 20130308
  Receipt Date: 20130808
  Transmission Date: 20140515
  Serious: No
  Sender: FDA-Public Use
  Company Number: US-009507513-1303USA003493

PATIENT
  Age: 16 Year
  Sex: Female
  Weight: 55.32 kg

DRUGS (1)
  1. IMPLANON [Suspect]
     Indication: CONTRACEPTION
     Dosage: UNK
     Route: 059
     Dates: start: 201106

REACTIONS (4)
  - Unintended pregnancy [Unknown]
  - Medical device complication [Unknown]
  - Device dislocation [Unknown]
  - Drug dose omission [Unknown]
